FAERS Safety Report 13720672 (Version 1)
Quarter: 2017Q3

REPORT INFORMATION
  Report Type: Spontaneous
  Country: US (occurrence: US)
  Receive Date: 20170706
  Receipt Date: 20170706
  Transmission Date: 20171127
  Serious: No
  Sender: FDA-Public Use
  Company Number: US-KYOWAKIRIN-2017BKK000186

PATIENT

DRUGS (1)
  1. FARESTON [Suspect]
     Active Substance: TOREMIFENE CITRATE
     Indication: NEOPLASM MALIGNANT
     Dosage: 1 DF, QD
     Route: 048
     Dates: start: 2014, end: 201701

REACTIONS (2)
  - Inability to afford medication [Unknown]
  - Drug dose omission [Not Recovered/Not Resolved]

NARRATIVE: CASE EVENT DATE: 201701
